FAERS Safety Report 9466713 (Version 1)
Quarter: 2013Q3

REPORT INFORMATION
  Report Type: Spontaneous
  Country: US (occurrence: US)
  Receive Date: 20130820
  Receipt Date: 20130820
  Transmission Date: 20140515
  Serious: No
  Sender: FDA-Public Use
  Company Number: US-TEVA-382294USA

PATIENT
  Sex: Female

DRUGS (1)
  1. FLUCONAZOLE [Suspect]

REACTIONS (4)
  - Hypersensitivity [Unknown]
  - Eye swelling [Unknown]
  - Rash [Unknown]
  - Pruritus [Unknown]
